FAERS Safety Report 4548150-3 (Version None)
Quarter: 2004Q4

REPORT INFORMATION
  Report Type: 
  Country: None (occurrence: None)
  Receive Date: 20041220
  Receipt Date: 20041006
  Transmission Date: 20050328
  Serious: Yes (Other)
  Sender: FDA-Public Use
  Company Number: 2003123855

PATIENT
  Age: 78 Year
  Sex: Male
  Weight: 103.5 kg

DRUGS (6)
  1. VFEND [Suspect]
     Indication: NEUTROPENIA
     Dosage: 600 MG (300 MG, 2 IN 1 D), ORAL
     Route: 048
     Dates: start: 20030101, end: 20030101
  2. VERAPAMIL [Suspect]
     Indication: HYPERTENSION
     Dosage: ORAL
     Route: 048
  3. FLUOROURACIL [Concomitant]
  4. CYTRABINE (CYTARABINE) [Concomitant]
  5. ANTINEOPLASTIC AGENTS (ANTINEOPLASTIC AGENTS) [Concomitant]
  6. IDARUBICIN HCL [Concomitant]

REACTIONS (4)
  - DRUG INTERACTION [None]
  - DRUG LEVEL INCREASED [None]
  - HALLUCINATION, AUDITORY [None]
  - PSYCHOTIC DISORDER [None]
